FAERS Safety Report 16557557 (Version 1)
Quarter: 2019Q3

REPORT INFORMATION
  Report Type: Spontaneous
  Country: US (occurrence: US)
  Receive Date: 20190711
  Receipt Date: 20190711
  Transmission Date: 20191004
  Serious: No
  Sender: FDA-Public Use
  Company Number: US-ACLARIS THERAPEUTICS-2019US002775

PATIENT
  Age: 41 Year
  Sex: Female

DRUGS (2)
  1. ESKATA [Suspect]
     Active Substance: HYDROGEN PEROXIDE
     Indication: SKIN LESION
     Dosage: UNK
     Route: 061
  2. ESKATA [Suspect]
     Active Substance: HYDROGEN PEROXIDE
     Dosage: UNK
     Route: 061

REACTIONS (4)
  - Application site discolouration [Unknown]
  - Application site discomfort [Unknown]
  - Hypertrophic scar [Unknown]
  - Application site pain [Unknown]
